FAERS Safety Report 8889735 (Version 2)
Quarter: 2012Q4

REPORT INFORMATION
  Report Type: 
  Country: JP (occurrence: JP)
  Receive Date: 20121107
  Receipt Date: 20121214
  Transmission Date: 20130627
  Serious: Yes (Other)
  Sender: FDA-Public Use
  Company Number: JP-009507513-1210JPN014720

PATIENT
  Age: 64 Year
  Sex: Male
  Weight: 52 kg

DRUGS (13)
  1. PEGINTRON [Suspect]
     Indication: CHRONIC HEPATITIS C
     Dosage: 1.5 Microgram per kilogram, qw
     Route: 058
     Dates: start: 20120822, end: 20120822
  2. PEGINTRON [Suspect]
     Dosage: 50 Microgram, qw
     Route: 058
     Dates: start: 20120829, end: 20120829
  3. REBETOL [Suspect]
     Indication: CHRONIC HEPATITIS C
     Dosage: 600 mg, qd
     Route: 048
     Dates: start: 20120822, end: 20120828
  4. REBETOL [Suspect]
     Dosage: 400 mg, qd
     Route: 048
     Dates: start: 20120829, end: 20120913
  5. TELAVIC [Suspect]
     Indication: CHRONIC HEPATITIS C
     Dosage: 2250 mg, qd
     Route: 048
     Dates: start: 20120822, end: 20120828
  6. TELAVIC [Suspect]
     Dosage: 1000 mg, qd
     Route: 048
     Dates: start: 20120829, end: 20120913
  7. GASTER [Concomitant]
     Indication: HYPERTENSION
     Dosage: 20 mg, qd
     Route: 048
  8. PREMINENT [Concomitant]
     Indication: HYPERTENSION
     Dosage: 1 DF, qd
     Route: 048
  9. ARTIST [Concomitant]
     Indication: HYPERTENSION
     Dosage: 10 mg, qd
     Route: 048
  10. NORVASC OD [Concomitant]
     Indication: HYPERTENSION
     Dosage: 5 mg, qd
     Route: 048
  11. MUCOSTA [Concomitant]
     Indication: PROPHYLAXIS
     Dosage: 300 mg, qd
     Route: 048
     Dates: start: 20120823
  12. DOGMATYL [Concomitant]
     Indication: PROPHYLAXIS
     Dosage: 150 mg, qd
     Route: 048
     Dates: start: 20120823
  13. PAXIL [Concomitant]
     Indication: PROPHYLAXIS
     Dosage: 20 mg, qd
     Route: 048
     Dates: start: 20120827, end: 20120903

REACTIONS (1)
  - Renal disorder [Unknown]
